FAERS Safety Report 12653283 (Version 4)
Quarter: 2017Q4

REPORT INFORMATION
  Report Type: Report from Study
  Country: US (occurrence: US)
  Receive Date: 20160815
  Receipt Date: 20171227
  Transmission Date: 20180320
  Serious: Yes (Hospitalization)
  Sender: FDA-Public Use
  Company Number: US-ACTELION-A-US2012-70226

PATIENT
  Age: 52 Year
  Sex: Male
  Weight: 71.2 kg

DRUGS (6)
  1. COUMADIN [Concomitant]
     Active Substance: WARFARIN SODIUM
  2. ADEMPAS [Concomitant]
     Active Substance: RIOCIGUAT
  3. REMODULIN [Concomitant]
     Active Substance: TREPROSTINIL
  4. TRACLEER [Suspect]
     Active Substance: BOSENTAN
     Indication: PULMONARY HYPERTENSION
     Dosage: 125 MG, BID
     Route: 048
     Dates: start: 20080115
  5. VELETRI [Suspect]
     Active Substance: EPOPROSTENOL
     Indication: PULMONARY HYPERTENSION
     Dosage: 30 NG/KG, PER MIN
     Route: 042
     Dates: start: 20110221
  6. RIOCIGUAT [Concomitant]
     Active Substance: RIOCIGUAT

REACTIONS (17)
  - Malaise [Recovered/Resolved]
  - Fatigue [Recovered/Resolved]
  - Infusion site pain [Unknown]
  - Medical device removal [Unknown]
  - Device related infection [Unknown]
  - Catheter site swelling [Unknown]
  - Blood culture positive [Recovered/Resolved]
  - Pyrexia [Recovered/Resolved]
  - Device occlusion [Unknown]
  - Catheter site infection [Recovered/Resolved]
  - Catheter placement [Recovered/Resolved]
  - Catheter site discharge [Unknown]
  - Catheter site pain [Unknown]
  - Chills [Recovered/Resolved]
  - Sepsis [Unknown]
  - Device related sepsis [Recovered/Resolved]
  - Leukocytosis [Recovered/Resolved]
